FAERS Safety Report 15251189 (Version 1)
Quarter: 2018Q3

REPORT INFORMATION
  Report Type: Spontaneous
  Country: US (occurrence: US)
  Receive Date: 20180717
  Receipt Date: 20180717
  Transmission Date: 20181010
  Serious: Yes (Life-Threatening)
  Sender: FDA-Public Use
  Company Number: None

PATIENT
  Age: 54 Year
  Sex: Male

DRUGS (3)
  1. APIXABAN [Suspect]
     Active Substance: APIXABAN
     Indication: MITRAL VALVE REPAIR
     Route: 048
     Dates: start: 20180410, end: 20180411
  2. APIXABAN [Suspect]
     Active Substance: APIXABAN
     Indication: ATRIAL FIBRILLATION
     Route: 048
     Dates: start: 20180410, end: 20180411
  3. CLOPIDOGREL [Suspect]
     Active Substance: CLOPIDOGREL BISULFATE
     Route: 048

REACTIONS (7)
  - Chest pain [None]
  - Vertigo [None]
  - Haemorrhage [None]
  - Haemoglobin decreased [None]
  - Calciphylaxis [None]
  - Penis disorder [None]
  - Haematocrit decreased [None]
